FAERS Safety Report 5274738-0 (Version None)
Quarter: 2007Q1

REPORT INFORMATION
  Report Type: 
  Country: None (occurrence: None)
  Receive Date: 20070320
  Receipt Date: 20070312
  Transmission Date: 20070707
  Serious: Yes (Hospitalization)
  Sender: FDA-Public Use
  Company Number: 238167

PATIENT
  Age: 72 Year
  Sex: Male
  Weight: 130.6 kg

DRUGS (15)
  1. RAPTIVA [Suspect]
     Indication: PSORIASIS
     Dosage: 1.7 ML, SUBCUTANEOUS
     Route: 058
     Dates: start: 20061018
  2. INSULIN (INSULIN) [Concomitant]
  3. GLUCOTROL [Concomitant]
  4. ZOCOR [Concomitant]
  5. PRILOSEC [Concomitant]
  6. ASPIRIN [Concomitant]
  7. LASIX [Concomitant]
  8. PROFEN FORTE DM (DEXTROMETHORPHAN HYDROBROMIDE, GUAIFENESIN, PSEUDOEPH [Concomitant]
  9. DIOVAN [Concomitant]
  10. ACTOS [Concomitant]
  11. LYRICA [Concomitant]
  12. NEBULIZER (UNK INGREDIENTS) (RESPIRATORY TREATMENTS AND DEVICES) [Concomitant]
  13. RANEXA (RANOLAZINE HYDROCHLORIDE) [Concomitant]
  14. COUMADIN [Concomitant]
  15. NITROGLYCERIN PATCH (NITROGLYCERIN) [Concomitant]

REACTIONS (5)
  - ARTERIAL OCCLUSIVE DISEASE [None]
  - CARDIAC FAILURE CONGESTIVE [None]
  - CONDITION AGGRAVATED [None]
  - EPISTAXIS [None]
  - PSORIASIS [None]
